FAERS Safety Report 8549426-5 (Version None)
Quarter: 2012Q3

REPORT INFORMATION
  Report Type: 
  Country: None (occurrence: None)
  Receive Date: 20120730
  Receipt Date: 20120720
  Transmission Date: 20120928
  Serious: Yes (Other)
  Sender: FDA-Public Use
  Company Number: BR-PFIZER INC-2012177527

PATIENT
  Age: 52 Year
  Sex: Male

DRUGS (6)
  1. NPH INSULIN [Concomitant]
     Indication: DIABETES MELLITUS
     Dosage: UNK
     Dates: start: 19920101
  2. NOVORAPID [Concomitant]
     Indication: DIABETES MELLITUS
  3. FLUTICASONE PROPIONATE/SALMETEROL [Concomitant]
     Indication: ASTHMA
     Dosage: UNK
     Dates: start: 20070101
  4. REGULAR INSULIN [Concomitant]
     Indication: DIABETES MELLITUS
     Dosage: UNK
     Dates: start: 19920101
  5. CAVERJECT [Suspect]
     Indication: ERECTILE DYSFUNCTION
     Dosage: 20 UG, AS NEEDED (BEFORE SEXUAL INTERCOURSE)
     Route: 017
     Dates: start: 20111201
  6. METFORMIN HCL [Concomitant]
     Indication: DIABETES MELLITUS

REACTIONS (4)
  - PENILE PAIN [None]
  - DYSPNOEA [None]
  - PENILE SWELLING [None]
  - TACHYCARDIA [None]
